FAERS Safety Report 12472978 (Version 4)
Quarter: 2016Q3

REPORT INFORMATION
  Report Type: Report from Study
  Country: IE (occurrence: IE)
  Receive Date: 20160616
  Receipt Date: 20160830
  Transmission Date: 20161109
  Serious: Yes (Disabling, Other)
  Sender: FDA-Public Use
  Company Number: IE-BAYER-2016-092002

PATIENT
  Age: 66 Year
  Sex: Female
  Weight: 54.6 kg

DRUGS (2)
  1. STIVARGA [Suspect]
     Active Substance: REGORAFENIB
     Indication: COLORECTAL CANCER METASTATIC
     Dosage: 120 MG, QD
     Route: 048
     Dates: start: 20160504, end: 20160524
  2. STIVARGA [Suspect]
     Active Substance: REGORAFENIB
     Indication: COLORECTAL CANCER METASTATIC
     Dosage: UNK
     Dates: start: 2016, end: 20160719

REACTIONS (13)
  - Skin fissures [Recovered/Resolved]
  - Pain in extremity [Recovering/Resolving]
  - Asthenia [Recovered/Resolved]
  - Restless legs syndrome [None]
  - Stomatitis [Recovered/Resolved]
  - Mobility decreased [Recovered/Resolved]
  - Sneezing [None]
  - Dysphonia [None]
  - Night sweats [Recovered/Resolved]
  - Palmar-plantar erythrodysaesthesia syndrome [None]
  - Colorectal cancer metastatic [None]
  - Odynophagia [None]
  - Oropharyngeal pain [None]

NARRATIVE: CASE EVENT DATE: 20160506
